FAERS Safety Report 8909454 (Version 1)
Quarter: 2012Q4

REPORT INFORMATION
  Report Type: Spontaneous
  Country: CH (occurrence: None)
  Receive Date: 20121109
  Receipt Date: 20121109
  Transmission Date: 20130627
  Serious: Yes (Other)
  Sender: FDA-Public Use
  Company Number: DSM-1021-01190

PATIENT
  Age: 38 Year
  Sex: Female

DRUGS (1)
  1. OLMESARTAN [Suspect]
     Indication: ESSENTIAL HYPERTENSION
     Route: 048
     Dates: start: 2011

REACTIONS (2)
  - Abortion [None]
  - Exposure during pregnancy [None]
